FAERS Safety Report 17000628 (Version 2)
Quarter: 2019Q4

REPORT INFORMATION
  Report Type: Spontaneous
  Country: JP (occurrence: JP)
  Receive Date: 20191106
  Receipt Date: 20191218
  Transmission Date: 20200122
  Serious: Yes (Other)
  Sender: FDA-Public Use
  Company Number: JP-UCBSA-2019045774

PATIENT
  Age: 87 Year
  Sex: Female

DRUGS (3)
  1. CIMZIA [Suspect]
     Active Substance: CERTOLIZUMAB PEGOL
     Indication: RHEUMATOID ARTHRITIS
     Dosage: 400 MILLIGRAM, EV 2 WEEKS(QOW)
     Route: 058
  2. EVENITY [Suspect]
     Active Substance: ROMOSOZUMAB-AQQG
     Indication: OFF LABEL USE
  3. EVENITY [Suspect]
     Active Substance: ROMOSOZUMAB-AQQG
     Indication: RHEUMATOID ARTHRITIS
     Dosage: 210 MILLIGRAM, MONTHLY (QM)
     Route: 058
     Dates: start: 2019

REACTIONS (2)
  - Off label use [Unknown]
  - Dementia [Unknown]

NARRATIVE: CASE EVENT DATE: 2019
